FAERS Safety Report 24526706 (Version 3)
Quarter: 2024Q4

REPORT INFORMATION
  Report Type: Report from Study
  Country: TW (occurrence: TW)
  Receive Date: 20241021
  Receipt Date: 20241115
  Transmission Date: 20250115
  Serious: Yes (Death, Other)
  Sender: ALEXION PHARMACEUTICALS
  Company Number: TW-AstraZeneca-CH-00713102A

PATIENT
  Age: 68 Year
  Weight: 32 kg

DRUGS (5)
  1. DURVALUMAB [Suspect]
     Active Substance: DURVALUMAB
     Indication: Lung adenocarcinoma
     Dosage: 240 MILLIGRAM
  2. DURVALUMAB [Suspect]
     Active Substance: DURVALUMAB
     Dosage: 240 MILLIGRAM
  3. DURVALUMAB [Suspect]
     Active Substance: DURVALUMAB
     Dosage: 240 MILLIGRAM
  4. DURVALUMAB [Suspect]
     Active Substance: DURVALUMAB
     Dosage: 240 MILLIGRAM
  5. UNSPECIFIED INGREDIENT [Concomitant]
     Active Substance: UNSPECIFIED INGREDIENT
     Dosage: 240 UNK

REACTIONS (2)
  - Bacteraemia [Fatal]
  - Pneumonitis [Unknown]
